FAERS Safety Report 22641877 (Version 1)
Quarter: 2023Q2

REPORT INFORMATION
  Report Type: Report from Study
  Country: US (occurrence: None)
  Receive Date: 20230626
  Receipt Date: 20230626
  Transmission Date: 20230721
  Serious: Yes (Hospitalization)
  Sender: FDA-Public Use
  Company Number: US-ROCHE-3372154

PATIENT
  Age: 49 Year
  Sex: Female
  Weight: 68 kg

DRUGS (3)
  1. BEVACIZUMAB [Suspect]
     Active Substance: BEVACIZUMAB
     Indication: Non-small cell lung cancer
     Dosage: ON 13/FEB/2008, SHE RECEIVED MOST RECENT DOSE OF BEVACIZUMAB.?15 MG/KG IV OVER 30-90 MIN ON DAY 1Q 3
     Route: 042
  2. CISPLATIN [Suspect]
     Active Substance: CISPLATIN
     Indication: Non-small cell lung cancer
     Dosage: ON 13/FEB/2008, SHE RECEIVED MOST RECENT DOSE OF CISPLATIN.?75 MG/M2 IV OVER 60 MIN ON DAY 1
     Route: 042
  3. DOCETAXEL [Suspect]
     Active Substance: DOCETAXEL
     Indication: Non-small cell lung cancer
     Dosage: ON 13/FEB/2008, SHE RECEIVED MOST RECENT DOSE OF DOCETAXEL.?75 MG/M2 IV OVER 60 MIN ON DAY 1
     Route: 042

REACTIONS (4)
  - Aspiration pleural cavity [Recovered/Resolved with Sequelae]
  - Neutrophil count decreased [Recovered/Resolved]
  - Febrile neutropenia [Recovered/Resolved]
  - Pleural effusion [Recovered/Resolved]

NARRATIVE: CASE EVENT DATE: 20080201
